FAERS Safety Report 23862379 (Version 1)
Quarter: 2024Q2

REPORT INFORMATION
  Report Type: Spontaneous
  Country: US (occurrence: US)
  Receive Date: 20240516
  Receipt Date: 20240516
  Transmission Date: 20240716
  Serious: Yes (Death, Other)
  Sender: FDA-Public Use
  Company Number: US-UCBSA-2024024593

PATIENT
  Age: 36 Year
  Sex: Male

DRUGS (1)
  1. VIMPAT [Suspect]
     Active Substance: LACOSAMIDE
     Indication: Seizure
     Dosage: UNK
     Dates: start: 201508, end: 20161124

REACTIONS (6)
  - Arrhythmia [Fatal]
  - Seizure [Unknown]
  - Confusional state [Unknown]
  - Feeling abnormal [Unknown]
  - Resuscitation [Unknown]
  - Abnormal behaviour [Unknown]

NARRATIVE: CASE EVENT DATE: 20160101
